FAERS Safety Report 4946185-X (Version None)
Quarter: 2006Q1

REPORT INFORMATION
  Report Type: 
  Country: None (occurrence: None)
  Receive Date: 20060118
  Receipt Date: 20050124
  Transmission Date: 20060701
  Serious: Yes (Other)
  Sender: FDA-Public Use
  Company Number: US-JNJFOC-20041200916

PATIENT
  Age: 66 Year
  Sex: Female
  Weight: 46.5 kg

DRUGS (5)
  1. DOXIL (DOXORUBICIN HYDROCHLORIDE) LIPOSME INJECTION [Suspect]
     Indication: OVARIAN CANCER
     Dosage: 40 MG/M2, INTRAVENOUS
     Route: 042
     Dates: start: 20041112, end: 20041112
  2. MIRALAX [Concomitant]
  3. OXYCODONE (OXYCODONE) [Concomitant]
  4. MORPHINE [Concomitant]
  5. IRON (IRON) [Concomitant]

REACTIONS (4)
  - ANAEMIA [None]
  - HEPATOTOXICITY [None]
  - MALIGNANT NEOPLASM PROGRESSION [None]
  - OVARIAN CANCER [None]
